FAERS Safety Report 17316467 (Version 2)
Quarter: 2021Q1

REPORT INFORMATION
  Report Type: Spontaneous
  Country: TL (occurrence: TL)
  Receive Date: 20200124
  Receipt Date: 20210217
  Transmission Date: 20210419
  Serious: Yes (Death)
  Sender: FDA-Public Use
  Company Number: NVSC2020TL016908

PATIENT
  Sex: Male

DRUGS (1)
  1. GLIVEC [Suspect]
     Active Substance: IMATINIB MESYLATE
     Indication: CHRONIC MYELOID LEUKAEMIA
     Dosage: 4 DF
     Route: 065

REACTIONS (1)
  - Death [Fatal]
